FAERS Safety Report 7353507-1 (Version None)
Quarter: 2011Q1

REPORT INFORMATION
  Report Type: 
  Country: None (occurrence: None)
  Receive Date: 20110307
  Receipt Date: 20100517
  Transmission Date: 20110831
  Serious: No
  Sender: FDA-Public Use
  Company Number: AEUSA201000175

PATIENT
  Age: 47 Year
  Sex: Male
  Weight: 83.9154 kg

DRUGS (1)
  1. PROLASTIN [Suspect]
     Indication: ALPHA-1 ANTI-TRYPSIN DEFICIENCY
     Dosage: 5250 MG;QW;IV
     Route: 042
     Dates: start: 20040101

REACTIONS (3)
  - HEADACHE [None]
  - FATIGUE [None]
  - INCORRECT DRUG ADMINISTRATION RATE [None]
